FAERS Safety Report 20566823 (Version 5)
Quarter: 2023Q1

REPORT INFORMATION
  Report Type: Spontaneous
  Country: US (occurrence: US)
  Receive Date: 20220308
  Receipt Date: 20230317
  Transmission Date: 20230417
  Serious: Yes (Hospitalization, Disabling, Other)
  Sender: FDA-Public Use
  Company Number: US-ORGANON-O2203USA000498

PATIENT
  Sex: Female

DRUGS (3)
  1. SINGULAIR [Suspect]
     Active Substance: MONTELUKAST SODIUM
     Dosage: 1 TABLET, QD
     Route: 048
     Dates: start: 1998, end: 2012
  2. SINGULAIR [Suspect]
     Active Substance: MONTELUKAST SODIUM
     Dosage: 1 TABLET, QD
     Route: 048
     Dates: start: 20120517, end: 20121014
  3. SINGULAIR [Suspect]
     Active Substance: MONTELUKAST SODIUM
     Dosage: 1 TABLET EVERY DAY
     Route: 048
     Dates: start: 20121113, end: 20130412

REACTIONS (22)
  - Bipolar disorder [Not Recovered/Not Resolved]
  - Neuropsychiatric symptoms [Not Recovered/Not Resolved]
  - Asthma [Unknown]
  - Suicide attempt [Unknown]
  - Pneumonia [Unknown]
  - Anxiety disorder [Not Recovered/Not Resolved]
  - Abdominal pain upper [Unknown]
  - Depression [Not Recovered/Not Resolved]
  - Suicidal ideation [Recovered/Resolved]
  - Hallucination, visual [Recovered/Resolved]
  - Tension headache [Unknown]
  - Pain in extremity [Unknown]
  - Gait disturbance [Unknown]
  - Rhinitis allergic [Unknown]
  - Hypoaesthesia [Unknown]
  - Anger [Unknown]
  - Aggression [Unknown]
  - Nightmare [Unknown]
  - Headache [Unknown]
  - Asthenia [Not Recovered/Not Resolved]
  - Fatigue [Not Recovered/Not Resolved]
  - Urinary tract disorder [Recovered/Resolved]

NARRATIVE: CASE EVENT DATE: 20000101
